FAERS Safety Report 23971181 (Version 2)
Quarter: 2024Q3

REPORT INFORMATION
  Report Type: Report from Study
  Country: FR (occurrence: FR)
  Receive Date: 20240613
  Receipt Date: 20240716
  Transmission Date: 20241016
  Serious: Yes (Death, Other)
  Sender: GENMAB
  Company Number: FR-ABBVIE-5753641

PATIENT
  Age: 74 Year
  Sex: Male

DRUGS (2)
  1. EPCORITAMAB [Suspect]
     Active Substance: EPCORITAMAB
     Indication: Diffuse large B-cell lymphoma
     Dosage: UNK
     Route: 058
     Dates: start: 20240430, end: 20240430
  2. EPCORITAMAB [Suspect]
     Active Substance: EPCORITAMAB
     Dosage: UNK
     Route: 058
     Dates: start: 20240507, end: 20240507

REACTIONS (5)
  - Death [Fatal]
  - Cytokine release syndrome [Unknown]
  - Hypotension [Unknown]
  - Pyrexia [Unknown]
  - Chills [Unknown]

NARRATIVE: CASE EVENT DATE: 20240430
